FAERS Safety Report 16362531 (Version 1)
Quarter: 2019Q3

REPORT INFORMATION
  Report Type: Spontaneous
  Country: US (occurrence: US)
  Receive Date: 20190524
  Receipt Date: 20190524
  Transmission Date: 20191004
  Serious: Yes (Hospitalization)
  Sender: FDA-Public Use
  Company Number: None

PATIENT
  Age: 60 Year
  Sex: Female

DRUGS (15)
  1. METHOTREXATE. [Concomitant]
     Active Substance: METHOTREXATE
  2. TRAMADOL. [Concomitant]
     Active Substance: TRAMADOL
  3. NAPROXEN. [Concomitant]
     Active Substance: NAPROXEN
  4. CELECOXIB. [Concomitant]
     Active Substance: CELECOXIB
  5. ASPIRIN. [Concomitant]
     Active Substance: ASPIRIN
  6. HTH [Concomitant]
  7. XARELTO [Concomitant]
     Active Substance: RIVAROXABAN
  8. FOLIC ACID. [Concomitant]
     Active Substance: FOLIC ACID
  9. OXYCODONE [Concomitant]
     Active Substance: OXYCODONE
  10. PANTOPRAZOLE [Concomitant]
     Active Substance: PANTOPRAZOLE
  11. XELJANZ [Concomitant]
     Active Substance: TOFACITINIB CITRATE
     Route: 048
     Dates: start: 20180507
  12. HUMIRA [Concomitant]
     Active Substance: ADALIMUMAB
  13. FOLIC ACID. [Concomitant]
     Active Substance: FOLIC ACID
  14. MELOXICAM. [Concomitant]
     Active Substance: MELOXICAM
  15. GABAPENTIN. [Concomitant]
     Active Substance: GABAPENTIN

REACTIONS (1)
  - Knee arthroplasty [None]

NARRATIVE: CASE EVENT DATE: 20190520
